FAERS Safety Report 9010600 (Version 2)
Quarter: 2013Q1

REPORT INFORMATION
  Report Type: Spontaneous
  Country: US (occurrence: US)
  Receive Date: 20130109
  Receipt Date: 20130127
  Transmission Date: 20140127
  Serious: No
  Sender: FDA-Public Use
  Company Number: US-009507513-1301USA001313

PATIENT
  Age: 55 Year
  Sex: Female

DRUGS (5)
  1. TIMOLOL MALEATE [Suspect]
     Indication: GLAUCOMA
     Dosage: 1 DROP IN EACH EYE DAILY
     Route: 047
     Dates: start: 201211, end: 201212
  2. LATANOPROST [Concomitant]
     Dosage: UNK
  3. DIOVAN HCT [Concomitant]
     Dosage: UNK
  4. LEVOTHYROXINE SODIUM [Concomitant]
     Dosage: UNK
  5. CLARINEX [Concomitant]
     Dosage: UNK

REACTIONS (1)
  - Foreign body in eye [Not Recovered/Not Resolved]
